FAERS Safety Report 19844462 (Version 1)
Quarter: 2021Q3

REPORT INFORMATION
  Report Type: Spontaneous
  Country: US (occurrence: US)
  Receive Date: 20210917
  Receipt Date: 20210917
  Transmission Date: 20211014
  Serious: Yes (Life-Threatening, Other)
  Sender: FDA-Public Use
  Company Number: US-DRREDDYS-SPO/USA/21/0139870

PATIENT
  Age: 86 Year
  Sex: Female

DRUGS (4)
  1. CARVEDILOL. [Suspect]
     Active Substance: CARVEDILOL
     Indication: SYSTOLIC ANTERIOR MOTION OF MITRAL VALVE
  2. LISINOPRIL. [Suspect]
     Active Substance: LISINOPRIL
     Indication: STRESS CARDIOMYOPATHY
  3. CARVEDILOL. [Suspect]
     Active Substance: CARVEDILOL
     Indication: STRESS CARDIOMYOPATHY
  4. LISINOPRIL. [Suspect]
     Active Substance: LISINOPRIL
     Indication: SYSTOLIC ANTERIOR MOTION OF MITRAL VALVE

REACTIONS (2)
  - Cardiogenic shock [Recovering/Resolving]
  - Drug intolerance [Recovering/Resolving]
